FAERS Safety Report 19650168 (Version 5)
Quarter: 2021Q3

REPORT INFORMATION
  Report Type: Report from Study
  Country: US (occurrence: US)
  Receive Date: 20210802
  Receipt Date: 20210901
  Transmission Date: 20211014
  Serious: No
  Sender: FDA-Public Use
  Company Number: NVSC2021US159217

PATIENT
  Age: 60 Year
  Sex: Female

DRUGS (4)
  1. COSENTYX [Suspect]
     Active Substance: SECUKINUMAB
     Dosage: 75 MG, QW
     Route: 003
     Dates: start: 20210702
  2. COSENTYX [Suspect]
     Active Substance: SECUKINUMAB
     Indication: ANKYLOSING SPONDYLITIS
     Dosage: 150 MG, QW
     Route: 058
     Dates: start: 20210709
  3. COSENTYX [Suspect]
     Active Substance: SECUKINUMAB
     Dosage: 150 MG, QW
     Route: 003
     Dates: start: 20210702
  4. COSENTYX [Suspect]
     Active Substance: SECUKINUMAB
     Indication: ANKYLOSING SPONDYLITIS
     Dosage: 150 MG, QW
     Route: 058
     Dates: start: 20210701

REACTIONS (10)
  - Rash [Unknown]
  - Vitamin D decreased [Unknown]
  - Drug ineffective [Unknown]
  - Pain [Unknown]
  - Depression [Recovering/Resolving]
  - Anaemia [Unknown]
  - Anxiety [Recovering/Resolving]
  - Aphthous ulcer [Unknown]
  - Malaise [Recovered/Resolved with Sequelae]
  - Weight decreased [Unknown]

NARRATIVE: CASE EVENT DATE: 202107
